FAERS Safety Report 8272940-7 (Version None)
Quarter: 2012Q2

REPORT INFORMATION
  Report Type: 
  Country: None (occurrence: None)
  Receive Date: 20120411
  Receipt Date: 20120329
  Transmission Date: 20120825
  Serious: Yes (Hospitalization, Other)
  Sender: FDA-Public Use
  Company Number: US-ELI_LILLY_AND_COMPANY-US201201008760

PATIENT
  Sex: Female
  Weight: 77.098 kg

DRUGS (3)
  1. HYDROCODONE BITARTRATE [Concomitant]
  2. MOBIC [Concomitant]
     Indication: ANALGESIC INTERVENTION SUPPORTIVE THERAPY
     Dosage: 7.5 MG, QD
  3. CYMBALTA [Suspect]
     Indication: DEPRESSION
     Dosage: 60 MG, QD

REACTIONS (3)
  - SPINAL CORD COMPRESSION [None]
  - EXTRADURAL HAEMATOMA [None]
  - NEUROLOGICAL DECOMPENSATION [None]
